FAERS Safety Report 4778934-8 (Version None)
Quarter: 2005Q3

REPORT INFORMATION
  Report Type: 
  Country: None (occurrence: None)
  Receive Date: 20050922
  Receipt Date: 20050913
  Transmission Date: 20060218
  Serious: Yes (Other)
  Sender: FDA-Public Use
  Company Number: 2005-03478

PATIENT
  Age: 82 Year
  Sex: Female

DRUGS (2)
  1. GENTAMICIN SULFATE [Suspect]
     Indication: LIVER ABSCESS
     Dosage: 3.2 MG/KG, DAILY, INTRAVENOUS
     Route: 042
  2. CEPHALOTHIN [Concomitant]

REACTIONS (1)
  - BARTTER'S SYNDROME [None]
